FAERS Safety Report 18122798 (Version 5)
Quarter: 2023Q1

REPORT INFORMATION
  Report Type: Report from Study
  Country: US (occurrence: US)
  Receive Date: 20200807
  Receipt Date: 20230317
  Transmission Date: 20230417
  Serious: Yes (Death, Hospitalization, Other)
  Sender: FDA-Public Use
  Company Number: US-ACADIA PHARMACEUTICALS INC.-ACA-2020-PIM-002312

PATIENT
  Age: 83 Year
  Sex: Female

DRUGS (5)
  1. NUPLAZID [Suspect]
     Active Substance: PIMAVANSERIN TARTRATE
     Indication: Parkinson^s disease
     Dosage: 34 MILLIGRAM, QD
     Route: 048
     Dates: start: 20200630
  2. NUPLAZID [Suspect]
     Active Substance: PIMAVANSERIN TARTRATE
     Dosage: 34 MILLIGRAM, QD
     Route: 048
     Dates: start: 20211217, end: 20230218
  3. AMLODIPINE [Concomitant]
     Active Substance: AMLODIPINE BESYLATE
     Dosage: 5 MILLIGRAM
  4. GOCOVRI [Concomitant]
     Active Substance: AMANTADINE
     Dosage: 137 MILLIGRAM
  5. NOURIANZ [Concomitant]
     Active Substance: ISTRADEFYLLINE
     Dosage: 40 MILLIGRAM

REACTIONS (6)
  - Renal failure [Recovered/Resolved]
  - Breast cancer stage IV [Unknown]
  - Delusion [Not Recovered/Not Resolved]
  - Dermatitis diaper [Not Recovered/Not Resolved]
  - Hallucination, visual [Not Recovered/Not Resolved]
  - Hallucination [Unknown]

NARRATIVE: CASE EVENT DATE: 20230218
